FAERS Safety Report 21636026 (Version 1)
Quarter: 2022Q4

REPORT INFORMATION
  Report Type: Other
  Country: DK (occurrence: DE)
  Receive Date: 20221123
  Receipt Date: 20221123
  Transmission Date: 20230113
  Serious: Yes (Other)
  Sender: FDA-Public Use
  Company Number: DK-CELLTRION INC.-2022DE016603

PATIENT

DRUGS (4)
  1. RITUXIMAB [Suspect]
     Active Substance: RITUXIMAB
     Indication: Product used for unknown indication
     Dosage: UNK UNK, UNKNOWN FREQ
     Dates: start: 201004, end: 2018
  2. IMBRUVICA [Suspect]
     Active Substance: IBRUTINIB
     Indication: Product used for unknown indication
     Dosage: UNK
     Route: 048
     Dates: start: 202009
  3. BENDAMUSTINE HYDROCHLORIDE [Suspect]
     Active Substance: BENDAMUSTINE HYDROCHLORIDE
     Indication: Product used for unknown indication
     Dosage: UNK UNK, CYCLIC
     Dates: start: 201004, end: 2018
  4. VENETOCLAX [Suspect]
     Active Substance: VENETOCLAX
     Indication: B-cell small lymphocytic lymphoma
     Dosage: UNK, UNKNOWN FREQUENCY
     Route: 048
     Dates: start: 2019, end: 202009

REACTIONS (2)
  - Oedema peripheral [Unknown]
  - B-cell small lymphocytic lymphoma recurrent [Unknown]

NARRATIVE: CASE EVENT DATE: 20190701
